FAERS Safety Report 20771508 (Version 3)
Quarter: 2022Q2

REPORT INFORMATION
  Report Type: Other
  Country: JP (occurrence: JP)
  Receive Date: 20220430
  Receipt Date: 20220629
  Transmission Date: 20220721
  Serious: Yes (Other)
  Sender: FDA-Public Use
  Company Number: JP-CHUGAI-2022016259

PATIENT
  Age: 8 Year
  Sex: Male
  Weight: 50.3 kg

DRUGS (2)
  1. EMICIZUMAB [Suspect]
     Active Substance: EMICIZUMAB
     Indication: Haemophilia A with anti factor VIII
     Dosage: 3 MILLIGRAM/KILOGRAM, ONCE/WEEK
     Route: 058
     Dates: start: 20181214, end: 20190104
  2. EMICIZUMAB [Suspect]
     Active Substance: EMICIZUMAB
     Dosage: 3 MILLIGRAM/KILOGRAM, ONCE/2WEEKS
     Route: 058
     Dates: start: 20190111

REACTIONS (5)
  - Melaena [Unknown]
  - Varicose veins sublingual [Unknown]
  - Vasodilatation [Recovered/Resolved]
  - Dizziness [Recovered/Resolved]
  - Chest pain [Recovered/Resolved]

NARRATIVE: CASE EVENT DATE: 20190221
